FAERS Safety Report 5639366-3 (Version None)
Quarter: 2008Q1

REPORT INFORMATION
  Report Type: 
  Country: None (occurrence: None)
  Receive Date: 20080226
  Receipt Date: 20080219
  Transmission Date: 20080703
  Serious: Yes (Hospitalization, Other)
  Sender: FDA-Public Use
  Company Number: US-PFIZER INC-2007003729

PATIENT
  Sex: Male

DRUGS (2)
  1. CELEBREX [Suspect]
     Indication: PAIN IN EXTREMITY
  2. CELEBREX [Suspect]
     Indication: ARTHRALGIA

REACTIONS (1)
  - MYOCARDIAL INFARCTION [None]
